FAERS Safety Report 8854466 (Version 3)
Quarter: 2013Q1

REPORT INFORMATION
  Report Type: Report from Study
  Country: DE (occurrence: DE)
  Receive Date: 20121023
  Receipt Date: 20130128
  Transmission Date: 20140127
  Serious: Yes (Death, Hospitalization, Other)
  Sender: FDA-Public Use
  Company Number: DE-OTSUKA-EU-2012-10171

PATIENT
  Age: 72 Year
  Sex: Male
  Weight: 75 kg

DRUGS (38)
  1. SAMSCA [Suspect]
     Indication: INAPPROPRIATE ANTIDIURETIC HORMONE SECRETION
     Dosage: 7.5 MG MILLIGRAM(S), DAILY DOSE
     Route: 048
     Dates: start: 20120103, end: 20120104
  2. SAMSCA [Suspect]
     Dosage: 7.5 MG MILLIGRAM(S), DAILY DOSE
     Route: 048
     Dates: start: 20120109, end: 20120113
  3. SAMSCA [Suspect]
     Dosage: 15 MG MILLIGRAM(S), DAILY DOSE
     Route: 048
     Dates: start: 20120114, end: 20120114
  4. SAMSCA [Suspect]
     Dosage: 30 MG MILLIGRAM(S), DAILY DOSE
     Route: 048
     Dates: start: 20120115, end: 20120120
  5. SAMSCA [Suspect]
     Dosage: 15 MG MILLIGRAM(S), DAILY DOSE
     Route: 048
     Dates: start: 20120131, end: 20120201
  6. SAMSCA [Suspect]
     Dosage: 15 MG MILLIGRAM(S), DAILY DOSE
     Route: 048
     Dates: start: 20120226, end: 20120226
  7. SAMSCA [Suspect]
     Dosage: 15 MG MILLIGRAM(S), DAILY DOSE
     Route: 048
     Dates: start: 20120315, end: 20120315
  8. SAMSCA [Suspect]
     Dosage: 7.5 MG MILLIGRAM(S), DAILY DOSE
     Route: 048
     Dates: start: 20120317, end: 20120319
  9. SAMSCA [Suspect]
     Dosage: 15 MG MILLIGRAM(S), DAILY DOSE
     Route: 048
     Dates: start: 20120423, end: 20120423
  10. SAMSCA [Suspect]
     Dosage: 15 MG MILLIGRAM(S), DAILY DOSE
     Route: 048
     Dates: start: 20120425, end: 20120427
  11. SAMSCA [Suspect]
     Dosage: 7.5 MG MILLIGRAM(S), DAILY DOSE
     Route: 048
     Dates: start: 20120521, end: 20120522
  12. SAMSCA [Suspect]
     Dosage: 15 MG MILLIGRAM(S), DAILY DOSE
     Route: 048
     Dates: start: 20120604, end: 20121029
  13. SALINE [Concomitant]
     Dosage: 154 MMOL/L, DAILY DOSE
     Route: 065
     Dates: start: 20120424, end: 20120425
  14. METFORMIN [Concomitant]
     Indication: TYPE 2 DIABETES MELLITUS
     Dosage: 850 MG MILLIGRAM(S), DAILY DOSE
     Route: 048
     Dates: start: 20120423, end: 20120427
  15. METFORMIN [Concomitant]
     Dosage: 2000 MG MILLIGRAM(S), QD
     Dates: start: 20120427, end: 20120912
  16. METFORMIN [Concomitant]
     Dosage: 1700 MG MILLIGRAM(S), DAILY DOSE
     Route: 048
     Dates: start: 20120912, end: 20120922
  17. METFORMIN [Concomitant]
     Dosage: 2000 MG MILLIGRAM(S), DAILY DOSE
     Route: 048
     Dates: start: 20120923
  18. GLIMEPIRID [Concomitant]
     Indication: TYPE 2 DIABETES MELLITUS
     Dosage: 2 MG MILLIGRAM(S), DAILY DOSE
     Route: 048
     Dates: start: 20120423
  19. BISOPROLOL [Concomitant]
     Indication: HYPERTENSION
     Dosage: 2.5 MG MILLIGRAM(S), DAILY DOSE
     Route: 048
     Dates: start: 20120103, end: 201202
  20. BISOPROLOL [Concomitant]
     Dosage: 10 MG MILLIGRAM(S), DAILY DOSE
     Route: 048
     Dates: start: 201202
  21. AMLODIPIN [Concomitant]
     Indication: HYPERTENSION
     Dosage: 5 MG MILLIGRAM(S), DAILY DOSE
     Route: 048
     Dates: start: 20120522, end: 20120603
  22. AMLODIPIN [Concomitant]
     Dosage: 10 MG MILLIGRAM(S), QD
     Dates: start: 20120604, end: 20120922
  23. AMLODIPIN [Concomitant]
     Dosage: 5 MG MILLIGRAM(S), DAILY DOSE
     Dates: start: 20120923
  24. RAMIPRIL [Concomitant]
     Indication: HYPERTENSION
     Dosage: 10 MG MILLIGRAM(S), DAILY DOSE
     Route: 048
     Dates: start: 20120424, end: 20120521
  25. RAMIPRIL [Concomitant]
     Dosage: 5 MG MILLIGRAM(S), QD
     Dates: start: 20120522
  26. ALLOPURINOL [Concomitant]
     Indication: PROPHYLAXIS
     Dosage: 100 MG MILLIGRAM(S), DAILY DOSE
     Route: 048
     Dates: start: 20120423, end: 20120922
  27. ALLOPURINOL [Concomitant]
     Dosage: 300 MG MILLIGRAM(S), DAILY DOSE
     Dates: start: 20120923
  28. MOXONIDINE [Concomitant]
     Indication: HYPERTENSION
     Dosage: 0.3 MG MILLIGRAM(S), DAILY DOSE
     Route: 048
     Dates: start: 201202
  29. HYDROCHLORTHIAZID [Concomitant]
     Indication: HYPERTENSION
     Dosage: 25 MG MILLIGRAM(S), DAILY DOSE
     Route: 048
     Dates: start: 201202
  30. GENTAMYCIN [Concomitant]
     Indication: PYREXIA
     Dosage: 400 MG MILLIGRAM(S), QD
     Dates: start: 20120604, end: 20120613
  31. OCTENISEPT [Concomitant]
     Indication: BALANITIS
     Dosage: 3 DF DOSAGE FORM, DAILY DOSE
     Route: 061
     Dates: start: 201201, end: 20120922
  32. CARBOPLATIN [Concomitant]
     Indication: CHEMOTHERAPY
     Dosage: UNK
     Route: 042
     Dates: start: 20120120, end: 20120615
  33. CARBOPLATIN [Concomitant]
     Indication: LUNG NEOPLASM MALIGNANT
  34. ETOPOSID [Concomitant]
     Indication: CHEMOTHERAPY
     Dosage: UNK
     Route: 042
     Dates: start: 20120120, end: 20120615
  35. ETOPOSID [Concomitant]
     Indication: LUNG NEOPLASM MALIGNANT
  36. DEXAMETHASON [Concomitant]
     Indication: PROPHYLAXIS
     Dosage: 4 MG MILLIGRAM(S), DAILY DOSE
     Route: 048
     Dates: start: 20120923
  37. MORPHINE [Concomitant]
     Indication: PAIN
     Dosage: 20 MG MILLIGRAM(S), DAILY DOSE
     Route: 048
     Dates: start: 20120923
  38. RANITIDINE [Concomitant]
     Indication: PROPHYLAXIS
     Dosage: 300 MG MILLIGRAM(S), DAILY DOSE
     Route: 048
     Dates: start: 20120923

REACTIONS (12)
  - Rapid correction of hyponatraemia [Recovered/Resolved]
  - Bone marrow failure [Recovering/Resolving]
  - Dyspnoea [Fatal]
  - Tumour pain [Recovering/Resolving]
  - Blood glucose increased [Unknown]
  - Hypertension [Unknown]
  - General physical health deterioration [Fatal]
  - Atelectasis [Not Recovered/Not Resolved]
  - Cough [Recovering/Resolving]
  - Pyrexia [Recovering/Resolving]
  - Blood creatine phosphokinase MB increased [Unknown]
  - Wrong technique in drug usage process [Unknown]
